FAERS Safety Report 5052025-3 (Version None)
Quarter: 2006Q3

REPORT INFORMATION
  Report Type: 
  Country: None (occurrence: None)
  Receive Date: 20060711
  Receipt Date: 20060620
  Transmission Date: 20061208
  Serious: Yes (Hospitalization, Other)
  Sender: FDA-Public Use
  Company Number: DE200606003991

PATIENT
  Age: 75 Year
  Sex: Female
  Weight: 63 kg

DRUGS (2)
  1. YENTREVE (DULOXETINE HYDROCHLORIDE) CAPSULE [Suspect]
     Indication: URINARY INCONTINENCE
     Dosage: 20 MG DAILY (1/D) ORAL
     Route: 048
     Dates: start: 20040928, end: 20041008
  2. OXYBUTYNIN [Concomitant]

REACTIONS (3)
  - COLON CANCER METASTATIC [None]
  - METASTASES TO ABDOMINAL WALL [None]
  - OVARIAN CANCER [None]
